FAERS Safety Report 25900325 (Version 1)
Quarter: 2025Q4

REPORT INFORMATION
  Report Type: Spontaneous
  Country: US (occurrence: None)
  Receive Date: 20251008
  Receipt Date: 20251008
  Transmission Date: 20260118
  Serious: Yes (Hospitalization)
  Sender: FDA-CTU
  Company Number: None

PATIENT
  Age: 82 Year
  Sex: Female

DRUGS (17)
  1. DUPIXENT [Suspect]
     Active Substance: DUPILUMAB
     Indication: Chronic obstructive pulmonary disease
     Dosage: FREQUENCY : EVERY OTHER WEEK;?
     Route: 058
     Dates: start: 20250415
  2. ALENDRONATE [Concomitant]
     Active Substance: ALENDRONATE SODIUM
  3. CALCIUM 600MG W/D TABLETS G/S [Concomitant]
  4. VITAMIN D 1,000IU SOFTGELS [Concomitant]
  5. BREZTRI [Concomitant]
     Active Substance: BUDESONIDE\FORMOTEROL\GLYCOPYRROLATE
  6. DUPIXENT [Concomitant]
     Active Substance: DUPILUMAB
  7. Pantprazole [Concomitant]
  8. SPIRONOLACTONE [Concomitant]
     Active Substance: SPIRONOLACTONE
  9. LEVOTHYROXINE [Concomitant]
     Active Substance: LEVOTHYROXINE
  10. ROBAXIN [Concomitant]
     Active Substance: METHOCARBAMOL
  11. FARXIGA [Concomitant]
     Active Substance: DAPAGLIFLOZIN PROPANEDIOL
  12. DOXEPIN [Concomitant]
     Active Substance: DOXEPIN
  13. PREDNISONE [Concomitant]
     Active Substance: PREDNISONE
  14. VENLAFAXINE [Concomitant]
     Active Substance: VENLAFAXINE HYDROCHLORIDE
  15. furosemide ipratroprium [Concomitant]
  16. ALBUTEROL [Concomitant]
     Active Substance: ALBUTEROL
  17. ATORVASTATIN [Concomitant]
     Active Substance: ATORVASTATIN

REACTIONS (2)
  - Cardiac failure congestive [None]
  - Device malfunction [None]

NARRATIVE: CASE EVENT DATE: 20250808
